FAERS Safety Report 20012292 (Version 3)
Quarter: 2021Q4

REPORT INFORMATION
  Report Type: Report from Study
  Country: IT (occurrence: IT)
  Receive Date: 20211029
  Receipt Date: 20211116
  Transmission Date: 20220303
  Serious: Yes (Other)
  Sender: FDA-Public Use
  Company Number: IT-ROCHE-2873752

PATIENT
  Age: 39 Year
  Sex: Female
  Weight: 50 kg

DRUGS (10)
  1. TRASTUZUMAB [Suspect]
     Active Substance: TRASTUZUMAB
     Indication: Product used for unknown indication
     Dosage: 3 MILLIGRAM
     Route: 042
  2. TRASTUZUMAB [Suspect]
     Active Substance: TRASTUZUMAB
     Dosage: 6 MILLIGRAM/KILOGRAM, Q3W, 2 SUBSEQUENT ADMINISTRATIONS WITH KANJINTI
     Route: 042
     Dates: start: 20210505
  3. ADO-TRASTUZUMAB EMTANSINE [Suspect]
     Active Substance: ADO-TRASTUZUMAB EMTANSINE
     Indication: Invasive breast carcinoma
     Dosage: 160 MILLIGRAM, Q3W
     Route: 042
     Dates: start: 20200824
  4. ADO-TRASTUZUMAB EMTANSINE [Suspect]
     Active Substance: ADO-TRASTUZUMAB EMTANSINE
     Dosage: UNK, ADMINISTRATION OF KADCYLA INTERRUPTED
     Route: 042
  5. ADO-TRASTUZUMAB EMTANSINE [Suspect]
     Active Substance: ADO-TRASTUZUMAB EMTANSINE
     Dosage: UNK, 1 ADMINISTRATION OF KADCYLA
     Route: 042
     Dates: start: 20210311
  6. ADO-TRASTUZUMAB EMTANSINE [Suspect]
     Active Substance: ADO-TRASTUZUMAB EMTANSINE
     Dosage: 130 MILLIGRAM, ADMINISTRATION OF KADCYLA
     Route: 042
  7. ADO-TRASTUZUMAB EMTANSINE [Suspect]
     Active Substance: ADO-TRASTUZUMAB EMTANSINE
     Dosage: 3.6 MILLIGRAM/KILOGRAM, Q3W
     Route: 042
     Dates: start: 20200824
  8. TAMOXIFEN [Concomitant]
     Active Substance: TAMOXIFEN
     Dosage: UNK
  9. ERYTHROPOIETIN [Concomitant]
     Active Substance: ERYTHROPOIETIN
     Dosage: UNK UNK, 4XW, 1 VIAL SUBCUTANEOUS
     Route: 058
  10. KANJINTI [Concomitant]
     Active Substance: TRASTUZUMAB-ANNS
     Dosage: 6 MILLIGRAM, Q3W
     Route: 042

REACTIONS (21)
  - Haemorrhage [Unknown]
  - Thrombocytopenia [Unknown]
  - Anaemia [Unknown]
  - Lymphocyte count decreased [Unknown]
  - Eosinophil count decreased [Unknown]
  - Transferrin decreased [Unknown]
  - Haematocrit decreased [Unknown]
  - Red blood cell count decreased [Unknown]
  - Neutrophil count decreased [Unknown]
  - Protein total decreased [Unknown]
  - Red cell distribution width decreased [Unknown]
  - Vitamin D decreased [Unknown]
  - Blood glucose decreased [Unknown]
  - Mean cell volume decreased [Unknown]
  - Aspartate aminotransferase decreased [Unknown]
  - Blood chloride decreased [Unknown]
  - White blood cell count decreased [Unknown]
  - Platelet count decreased [Unknown]
  - Reticulocyte count decreased [Unknown]
  - Blood iron decreased [Unknown]
  - Mean cell haemoglobin concentration decreased [Unknown]

NARRATIVE: CASE EVENT DATE: 20200921
